FAERS Safety Report 24807272 (Version 6)
Quarter: 2025Q2

REPORT INFORMATION
  Report Type: Spontaneous
  Country: US (occurrence: US)
  Receive Date: 20250105
  Receipt Date: 20250504
  Transmission Date: 20250717
  Serious: Yes (Hospitalization, Other)
  Sender: SANOFI AVENTIS
  Company Number: US-SA-2025SA001106

PATIENT
  Age: 87 Year
  Sex: Female
  Weight: 54.09 kg

DRUGS (1)
  1. DUPIXENT [Suspect]
     Active Substance: DUPILUMAB
     Indication: Dermatitis atopic
     Dosage: 300 MG, QOW
     Route: 058

REACTIONS (6)
  - Spinal fracture [Unknown]
  - Hospitalisation [Unknown]
  - Spinal pain [Unknown]
  - Accident [Unknown]
  - Blood pressure increased [Unknown]
  - Stress [Unknown]
